FAERS Safety Report 19890307 (Version 1)
Quarter: 2021Q3

REPORT INFORMATION
  Report Type: Spontaneous
  Country: US (occurrence: US)
  Receive Date: 20210928
  Receipt Date: 20210928
  Transmission Date: 20211014
  Serious: Yes (Life-Threatening, Hospitalization)
  Sender: FDA-Public Use
  Company Number: None

PATIENT
  Age: 71 Year
  Sex: Female
  Weight: 63.9 kg

DRUGS (1)
  1. BARICITINIB. [Suspect]
     Active Substance: BARICITINIB
     Indication: COVID-19
     Route: 048
     Dates: start: 20210919, end: 20210923

REACTIONS (3)
  - Axillary vein thrombosis [None]
  - Deep vein thrombosis [None]
  - Fibrin D dimer increased [None]

NARRATIVE: CASE EVENT DATE: 20210923
